FAERS Safety Report 8914551 (Version 2)
Quarter: 2012Q4

REPORT INFORMATION
  Report Type: 
  Country: DE (occurrence: DE)
  Receive Date: 20121119
  Receipt Date: 20121122
  Transmission Date: 20130627
  Serious: Yes (Other)
  Sender: FDA-Public Use
  Company Number: DE-ROCHE-1154438

PATIENT
  Sex: Female

DRUGS (3)
  1. LUCENTIS [Suspect]
     Indication: AGE-RELATED MACULAR DEGENERATION
     Route: 050
     Dates: start: 20081210
  2. AVASTIN [Suspect]
     Indication: AGE-RELATED MACULAR DEGENERATION
     Route: 065
     Dates: start: 20110324
  3. ORTHOMOL IMMUN [Concomitant]

REACTIONS (8)
  - Arteriosclerotic retinopathy [Unknown]
  - Pigment dispersion syndrome [Unknown]
  - Macular scar [Unknown]
  - Cystoid macular oedema [Unknown]
  - Post procedural complication [Unknown]
  - Retinal degeneration [Unknown]
  - Age-related macular degeneration [Unknown]
  - Retinal detachment [Unknown]
